FAERS Safety Report 6521173-0 (Version None)
Quarter: 2009Q4

REPORT INFORMATION
  Report Type: 
  Country: None (occurrence: None)
  Receive Date: 20091222
  Receipt Date: 20091210
  Transmission Date: 20100525
  Serious: Yes (Other)
  Sender: FDA-Public Use
  Company Number: 235010K09USA

PATIENT
  Age: 51 Year
  Sex: Female
  Weight: 84 kg

DRUGS (10)
  1. REBIF [Suspect]
     Indication: MULTIPLE SCLEROSIS
     Dosage: 44 MCG, 3 IN 1 WEEKS, SUBCUTANEOUS
     Route: 058
     Dates: start: 20080807
  2. SYNTHROID [Concomitant]
  3. GLUCOPHAGE [Concomitant]
  4. CLONAZEPAM [Concomitant]
  5. ABILIFY [Concomitant]
  6. NEXIUM [Concomitant]
  7. VASOTEC [Concomitant]
  8. DITROPAN XL (OXYBUTYNIN /00538901/) [Concomitant]
  9. RISPERDAL [Concomitant]
  10. DEPAKOTE [Concomitant]

REACTIONS (6)
  - BLOOD POTASSIUM DECREASED [None]
  - BLOOD PROLACTIN DECREASED [None]
  - DIARRHOEA [None]
  - FATIGUE [None]
  - MALAISE [None]
  - PITUITARY TUMOUR [None]
